FAERS Safety Report 4709268-5 (Version None)
Quarter: 2005Q3

REPORT INFORMATION
  Report Type: 
  Country: None (occurrence: None)
  Receive Date: 20050707
  Receipt Date: 20050707
  Transmission Date: 20060218
  Serious: Yes (Disabling)
  Sender: FDA-Public Use
  Company Number: None

PATIENT
  Sex: Male
  Weight: 81.6475 kg

DRUGS (1)
  1. OXYCONTIN [Suspect]
     Dosage: 2 PER DAY

REACTIONS (4)
  - ASTHENIA [None]
  - BALANCE DISORDER [None]
  - DIFFICULTY IN WALKING [None]
  - FOOD INTERACTION [None]
